FAERS Safety Report 24768205 (Version 1)
Quarter: 2024Q4

REPORT INFORMATION
  Report Type: Spontaneous
  Country: US (occurrence: None)
  Receive Date: 20241223
  Receipt Date: 20241223
  Transmission Date: 20250114
  Serious: Yes (Other)
  Sender: Public
  Company Number: None

PATIENT
  Sex: Male
  Weight: 72 kg

DRUGS (2)
  1. ZOLOFT [Suspect]
     Active Substance: SERTRALINE HYDROCHLORIDE
     Indication: Major depression
     Dates: start: 20140101, end: 20140301
  2. ZOLOFT [Suspect]
     Active Substance: SERTRALINE HYDROCHLORIDE
     Indication: Generalised anxiety disorder

REACTIONS (15)
  - Product use issue [None]
  - Therapy cessation [None]
  - Adverse drug reaction [None]
  - Electric shock sensation [None]
  - Tremor [None]
  - Decreased appetite [None]
  - Sexual dysfunction [None]
  - Hypoaesthesia [None]
  - Anhedonia [None]
  - Flat affect [None]
  - Product communication issue [None]
  - Emotional poverty [None]
  - Decreased interest [None]
  - Apathy [None]
  - Emotional distress [None]

NARRATIVE: CASE EVENT DATE: 20140101
